FAERS Safety Report 9878046 (Version 1)
Quarter: 2014Q1

REPORT INFORMATION
  Report Type: Spontaneous
  Country: US (occurrence: None)
  Receive Date: 20140204
  Receipt Date: 20140204
  Transmission Date: 20141002
  Serious: Yes (Other)
  Sender: FDA-Public Use
  Company Number: 20140042

PATIENT
  Sex: 0

DRUGS (2)
  1. NEOSTIGMINE METHYLSULFATE [Suspect]
     Indication: NEUROMUSCULAR BLOCKADE REVERSAL
     Dosage: FULL DOSE UNKNOWN?
  2. NEOSTIGMINE METHYLSULFATE [Suspect]
     Indication: NEUROMUSCULAR BLOCKADE REVERSAL
     Dosage: FULL DOSE UNKNOWN?

REACTIONS (3)
  - Asthenia [None]
  - Hypotonia [None]
  - Drug ineffective [None]
